FAERS Safety Report 9046474 (Version 1)
Quarter: 2013Q1

REPORT INFORMATION
  Report Type: Spontaneous
  Country: US (occurrence: None)
  Receive Date: 20130128
  Receipt Date: 20130128
  Transmission Date: 20140127
  Serious: No
  Sender: FDA-Public Use
  Company Number: None

PATIENT
  Age: 48 Year
  Sex: Female
  Weight: 106.6 kg

DRUGS (2)
  1. PRAMIPEXOLE [Suspect]
     Indication: RESTLESS LEGS SYNDROME
     Dosage: ONE DAILY.
     Route: 048
     Dates: start: 20120101, end: 20121201
  2. PRAMIPEXOLE [Suspect]
     Dosage: ONE DAILY
     Route: 048
     Dates: start: 20121201, end: 20130101

REACTIONS (3)
  - Compulsive shopping [None]
  - Pathological gambling [None]
  - Economic problem [None]
